FAERS Safety Report 10967835 (Version 1)
Quarter: 2015Q1

REPORT INFORMATION
  Report Type: Spontaneous
  Country: US (occurrence: None)
  Receive Date: 20150226
  Receipt Date: 20150226
  Transmission Date: 20150721
  Serious: No
  Sender: FDA-Public Use
  Company Number: TPA2010A01086

PATIENT
  Age: 80 Year
  Sex: Female
  Weight: 78.93 kg

DRUGS (15)
  1. GEMFIBROZIL (GEMFIBROZIL) [Concomitant]
     Active Substance: GEMFIBROZIL
  2. AMITRIPTYLINE (AMITRIPTYLINE) [Concomitant]
     Active Substance: AMITRIPTYLINE
  3. PARCOPA RAPID DISSOLVE (LEVODOPA, CARBIDOPA) [Concomitant]
  4. OMEPRAZOLE (OMEPRAZOLE) [Concomitant]
     Active Substance: OMEPRAZOLE
  5. SYNTHROID [Concomitant]
     Active Substance: LEVOTHYROXINE SODIUM
  6. REQUIP [Concomitant]
     Active Substance: ROPINIROLE HYDROCHLORIDE
  7. PROCRIT (ERYTHROPOIETIN) [Concomitant]
  8. AMLODIPINE [Concomitant]
     Active Substance: AMLODIPINE BESYLATE
  9. VICODIN (PARACETAMOL, HYDROCODONE BITARTRATE) [Concomitant]
  10. ULORIC [Suspect]
     Active Substance: FEBUXOSTAT
     Indication: GOUT
     Route: 048
     Dates: start: 20100217
  11. PLAVIX (CLOPIDIGREL SULFATE) [Concomitant]
  12. COLECALCIFEROL (COLECALCIFEROL) [Concomitant]
  13. VENOFER (SACCHARATED IRON OXIDE) [Concomitant]
  14. LASIX [Concomitant]
     Active Substance: FUROSEMIDE
  15. COLCHICINE (COLCHICINE) [Concomitant]
     Active Substance: COLCHICINE

REACTIONS (2)
  - Paraesthesia [None]
  - Dyskinesia [None]

NARRATIVE: CASE EVENT DATE: 20100217
